FAERS Safety Report 25030751 (Version 1)
Quarter: 2025Q1

REPORT INFORMATION
  Report Type: Spontaneous
  Country: US (occurrence: US)
  Receive Date: 20250303
  Receipt Date: 20250303
  Transmission Date: 20250408
  Serious: Yes (Hospitalization, Other)
  Sender: ACCORD
  Company Number: US-Accord-471190

PATIENT
  Age: 64 Year
  Sex: Male
  Weight: 87.0 kg

DRUGS (20)
  1. CARBOPLATIN [Suspect]
     Active Substance: CARBOPLATIN
     Indication: Pleural mesothelioma
     Route: 042
     Dates: start: 20221031, end: 20221031
  2. PEMETREXED [Suspect]
     Active Substance: PEMETREXED
     Indication: Pleural mesothelioma
     Route: 042
     Dates: start: 20221031, end: 20221031
  3. AMLODIPINE [Concomitant]
     Active Substance: AMLODIPINE BESYLATE
     Dates: start: 20160429, end: 20230130
  4. LISINOPRIL [Concomitant]
     Active Substance: LISINOPRIL
     Dates: start: 20160426, end: 20221125
  5. ESCITALOPRAM OXALATE [Concomitant]
     Active Substance: ESCITALOPRAM OXALATE
     Dates: start: 20221102
  6. DULOXETINE [Concomitant]
     Active Substance: DULOXETINE
     Dates: start: 20171116
  7. OLANZAPINE [Concomitant]
     Active Substance: OLANZAPINE
     Dates: start: 20220809
  8. GABAPENTIN [Concomitant]
     Active Substance: GABAPENTIN
     Dates: start: 20220805, end: 20221125
  9. DICLOFENAC [Concomitant]
     Active Substance: DICLOFENAC
     Dates: start: 20220808
  10. LIDOCAINE [Concomitant]
     Active Substance: LIDOCAINE
     Dates: start: 20220808, end: 20230306
  11. ADVIL [Concomitant]
     Active Substance: IBUPROFEN
     Dates: start: 2000, end: 20221125
  12. FOLIC ACID [Concomitant]
     Active Substance: FOLIC ACID
     Dates: start: 20221007
  13. ONDANSETRON [Concomitant]
     Active Substance: ONDANSETRON
     Dates: start: 20220805, end: 20230306
  14. POLYETHYLENE GLYCOL 3350 [Concomitant]
     Active Substance: POLYETHYLENE GLYCOL 3350
     Dates: start: 20220617
  15. VITAMINS [Concomitant]
     Active Substance: VITAMINS
     Dates: start: 20131122
  16. ZYRTEC [Concomitant]
     Active Substance: CETIRIZINE HYDROCHLORIDE
     Dates: start: 202206
  17. FLONASE [Concomitant]
     Active Substance: FLUTICASONE PROPIONATE
     Dates: start: 202206
  18. BACLOFEN [Concomitant]
     Active Substance: BACLOFEN
     Dates: start: 20221107, end: 20221125
  19. CARBOPLATIN [Suspect]
     Active Substance: CARBOPLATIN
     Indication: Pleural mesothelioma
     Route: 042
     Dates: start: 20221121, end: 20221121
  20. PEMETREXED [Suspect]
     Active Substance: PEMETREXED
     Indication: Pleural mesothelioma
     Route: 042
     Dates: start: 20221121, end: 20221121

REACTIONS (6)
  - Acute kidney injury [Recovered/Resolved]
  - Alanine aminotransferase increased [Recovered/Resolved]
  - Aspartate aminotransferase increased [Recovered/Resolved]
  - Hyperuricaemia [Recovered/Resolved]
  - Hyperphosphataemia [Recovered/Resolved]
  - Lymphocyte count decreased [Recovered/Resolved]

NARRATIVE: CASE EVENT DATE: 20221121
